FAERS Safety Report 18339614 (Version 1)
Quarter: 2020Q4

REPORT INFORMATION
  Report Type: Spontaneous
  Country: CA (occurrence: CA)
  Receive Date: 20201002
  Receipt Date: 20201002
  Transmission Date: 20210113
  Serious: Yes (Death)
  Sender: FDA-Public Use
  Company Number: CA-TEVA-2020-CA-1834136

PATIENT
  Age: 72 Year
  Sex: Female

DRUGS (17)
  1. CLOPIDOGREL [Suspect]
     Active Substance: CLOPIDOGREL BISULFATE
  2. ACETAMINOPHEN. [Concomitant]
     Active Substance: ACETAMINOPHEN
  3. NITROGLYCERIN. [Concomitant]
     Active Substance: NITROGLYCERIN
  4. ATORVASTATIN [Concomitant]
     Active Substance: ATORVASTATIN
  5. MACROBID [Concomitant]
     Active Substance: NITROFURANTOIN\NITROFURANTOIN MONOHYDRATE
  6. PERINDOPRIL [Concomitant]
     Active Substance: PERINDOPRIL
  7. RISEDRONATE(MANUFACTURER UNKNOWN) [Concomitant]
     Active Substance: RISEDRONATE SODIUM
  8. CITALOPRAM [Concomitant]
     Active Substance: CITALOPRAM HYDROBROMIDE
  9. DIMENHYDRINATE. [Concomitant]
     Active Substance: DIMENHYDRINATE
  10. SALBUTAMOL [Concomitant]
     Active Substance: ALBUTEROL
  11. ASA [Suspect]
     Active Substance: ASPIRIN
     Indication: ACUTE MYOCARDIAL INFARCTION
     Route: 048
  12. K-DUR [Concomitant]
     Active Substance: POTASSIUM CHLORIDE
  13. INSPIOLTO RESPIMAT FOR ORAL INHALATION. WITH INSPIOLTO RESPIMAT INHALE [Concomitant]
  14. CLOTRIMAZOLE. [Concomitant]
     Active Substance: CLOTRIMAZOLE
  15. FUROSEMIDE. [Concomitant]
     Active Substance: FUROSEMIDE
  16. LORAZEPAM. [Concomitant]
     Active Substance: LORAZEPAM
  17. NITRO SPRAY [Concomitant]
     Active Substance: NITROGLYCERIN

REACTIONS (4)
  - Melaena [Fatal]
  - Haemoglobin decreased [Fatal]
  - Haemorrhage [Fatal]
  - Haematemesis [Fatal]
